FAERS Safety Report 14436235 (Version 1)
Quarter: 2018Q1

REPORT INFORMATION
  Report Type: Spontaneous
  Country: US (occurrence: US)
  Receive Date: 20180124
  Receipt Date: 20180124
  Transmission Date: 20180509
  Serious: Yes (Other)
  Sender: FDA-Public Use
  Company Number: None

PATIENT
  Age: 65 Year
  Sex: Male
  Weight: 142.83 kg

DRUGS (13)
  1. SIMVASTATIN. [Concomitant]
     Active Substance: SIMVASTATIN
  2. RANITIDINE. [Concomitant]
     Active Substance: RANITIDINE
  3. ESOMEPRAZOLE [Concomitant]
     Active Substance: ESOMEPRAZOLE
  4. CAPECITABINE. [Suspect]
     Active Substance: CAPECITABINE
     Indication: OESOPHAGEAL CARCINOMA
     Route: 048
     Dates: start: 20171117, end: 20180123
  5. TAMSULOSIN [Concomitant]
     Active Substance: TAMSULOSIN
  6. PAROXETINE. [Concomitant]
     Active Substance: PAROXETINE
  7. PROAIR HFA [Concomitant]
     Active Substance: ALBUTEROL SULFATE
  8. GLIPIZIDE. [Concomitant]
     Active Substance: GLIPIZIDE
  9. MULTIVITAMINS [Concomitant]
     Active Substance: VITAMINS
  10. DICLOFENAC [Concomitant]
     Active Substance: DICLOFENAC
  11. OMEPRAZOLE. [Concomitant]
     Active Substance: OMEPRAZOLE
  12. VARUBI [Concomitant]
     Active Substance: ROLAPITANT
  13. ONDANSETRON [Concomitant]
     Active Substance: ONDANSETRON

REACTIONS (1)
  - Disease progression [None]
